FAERS Safety Report 9278880 (Version 1)
Quarter: 2013Q2

REPORT INFORMATION
  Report Type: Spontaneous
  Country: JP (occurrence: JP)
  Receive Date: 20130508
  Receipt Date: 20130508
  Transmission Date: 20140414
  Serious: Yes (Other)
  Sender: FDA-Public Use
  Company Number: JP-SP-2013-05850

PATIENT
  Sex: 0

DRUGS (1)
  1. IMMUCYST [Suspect]
     Indication: PRODUCT USED FOR UNKNOWN INDICATION
     Dosage: NOT REPORTED
     Route: 043

REACTIONS (2)
  - Interstitial lung disease [Unknown]
  - Malaise [Unknown]
